FAERS Safety Report 14759767 (Version 1)
Quarter: 2018Q2

REPORT INFORMATION
  Report Type: Report from Study
  Country: None (occurrence: US)
  Receive Date: 20180413
  Receipt Date: 20180413
  Transmission Date: 20180711
  Serious: Yes (Hospitalization, Other)
  Sender: FDA-Public Use
  Company Number: US-ABBVIE-18K-163-2314972-00

PATIENT
  Age: 60 Year
  Sex: Female
  Weight: 72.64 kg

DRUGS (2)
  1. HUMIRA [Suspect]
     Active Substance: ADALIMUMAB
     Indication: CROHN^S DISEASE
     Route: 058
     Dates: start: 2015, end: 20180208
  2. VITAMIN D [Concomitant]
     Active Substance: CHOLECALCIFEROL
     Indication: VITAMIN SUPPLEMENTATION

REACTIONS (6)
  - Complication associated with device [Recovered/Resolved]
  - Crohn^s disease [Recovered/Resolved]
  - Post procedural infection [Recovering/Resolving]
  - Abdominal pain [Not Recovered/Not Resolved]
  - Enterocolonic fistula [Recovered/Resolved]
  - Stomal hernia [Recovered/Resolved]

NARRATIVE: CASE EVENT DATE: 2016
